FAERS Safety Report 4728031-2 (Version None)
Quarter: 2005Q3

REPORT INFORMATION
  Report Type: 
  Country: None (occurrence: None)
  Receive Date: 20050725
  Receipt Date: 20050407
  Transmission Date: 20060218
  Serious: No
  Sender: FDA-Public Use
  Company Number: USA050495204

PATIENT
  Age: 14 Year
  Sex: Male
  Weight: 52 kg

DRUGS (1)
  1. STRATTERA [Suspect]
     Indication: ATTENTION DEFICIT/HYPERACTIVITY DISORDER
     Dosage: 80 MG/1 DAY
     Dates: start: 20040601

REACTIONS (5)
  - DEAFNESS [None]
  - LABYRINTHITIS [None]
  - MIDDLE EAR EFFUSION [None]
  - PRESCRIBED OVERDOSE [None]
  - PROTEIN URINE [None]
